FAERS Safety Report 6450446-5 (Version None)
Quarter: 2009Q4

REPORT INFORMATION
  Report Type: 
  Country: None (occurrence: None)
  Receive Date: 20091123
  Receipt Date: 20090819
  Transmission Date: 20100525
  Serious: No
  Sender: FDA-Public Use
  Company Number: US-BAYER-200930742NA

PATIENT
  Age: 55 Year
  Sex: Female
  Weight: 73 kg

DRUGS (5)
  1. ULTRAVIST 300 [Suspect]
     Indication: COMPUTERISED TOMOGRAM ABDOMEN
     Dosage: TOTAL DAILY DOSE: 110 ML  UNIT DOSE: 200 ML
     Route: 042
     Dates: start: 20090819, end: 20090819
  2. ZYRTEC [Concomitant]
  3. SUDAFED 12 HOUR [Concomitant]
  4. ALLEGRA [Concomitant]
  5. BARIUM [Concomitant]
     Route: 048
     Dates: start: 20090819, end: 20090819

REACTIONS (1)
  - NASAL CONGESTION [None]
